FAERS Safety Report 12080089 (Version 1)
Quarter: 2016Q1

REPORT INFORMATION
  Report Type: Spontaneous
  Country: CA (occurrence: CA)
  Receive Date: 20160216
  Receipt Date: 20160216
  Transmission Date: 20160526
  Serious: Yes (Disabling, Other)
  Sender: FDA-Public Use
  Company Number: CA-PFIZER INC-2016080192

PATIENT
  Age: 13 Year
  Sex: Female

DRUGS (1)
  1. BENZATHINE BENZYLPENICILLIN [Suspect]
     Active Substance: PENICILLIN G BENZATHINE
     Indication: INFECTION
     Dosage: UNK
     Route: 030

REACTIONS (2)
  - Mental impairment [Unknown]
  - Physical disability [Unknown]
